FAERS Safety Report 9326275 (Version 2)
Quarter: 2013Q2

REPORT INFORMATION
  Report Type: Report from Study
  Country: DE (occurrence: DE)
  Receive Date: 20130604
  Receipt Date: 20130620
  Transmission Date: 20140414
  Serious: Yes (Other)
  Sender: FDA-Public Use
  Company Number: PHHY2013DE055963

PATIENT
  Sex: Male
  Weight: 77 kg

DRUGS (7)
  1. AMN107 [Suspect]
     Indication: CHRONIC MYELOID LEUKAEMIA
     Dosage: 600 MG, PER DAY
     Route: 048
     Dates: start: 20130103, end: 20130214
  2. AMN107 [Suspect]
     Dosage: 600 MG, PER DAY
  3. L-THYROXIN [Concomitant]
     Dosage: 112.5 UG
  4. L-THYROXIN [Concomitant]
     Dosage: 100 UG
  5. IBUPROFEN [Concomitant]
     Dosage: 800 MG
     Dates: start: 20130218, end: 20130223
  6. TAVANIC [Concomitant]
     Dosage: 500 MG
     Dates: start: 20130218, end: 20130223
  7. UREA [Concomitant]
     Dates: start: 20130307

REACTIONS (4)
  - Leukopenia [Recovered/Resolved]
  - Skin toxicity [Not Recovered/Not Resolved]
  - Haematotoxicity [Unknown]
  - Haemorrhoids [Recovered/Resolved]
